FAERS Safety Report 7288323-2 (Version None)
Quarter: 2011Q1

REPORT INFORMATION
  Report Type: 
  Country: None (occurrence: None)
  Receive Date: 20110211
  Receipt Date: 20110207
  Transmission Date: 20110831
  Serious: Yes (Other)
  Sender: FDA-Public Use
  Company Number: SE-PFIZER INC-2011027725

PATIENT
  Age: 41 Year
  Sex: Male

DRUGS (2)
  1. VIAGRA [Suspect]
     Dosage: 25 MG, UNK
     Dates: start: 20110101
  2. XALATAN [Suspect]
     Dosage: UNK

REACTIONS (2)
  - OCULAR HYPERAEMIA [None]
  - HYPOACUSIS [None]
